FAERS Safety Report 17268398 (Version 1)
Quarter: 2020Q1

REPORT INFORMATION
  Report Type: Spontaneous
  Country: US (occurrence: US)
  Receive Date: 20191223
  Receipt Date: 20191223
  Transmission Date: 20200409
  Serious: Yes (Hospitalization)
  Sender: FDA-Public Use
  Company Number: None

PATIENT
  Age: 68 Year
  Sex: Male

DRUGS (14)
  1. ESCITALOPRAM [Concomitant]
     Active Substance: ESCITALOPRAM OXALATE
  2. LINZESS [Concomitant]
     Active Substance: LINACLOTIDE
  3. ESBRIET [Suspect]
     Active Substance: PIRFENIDONE
     Indication: AUTONOMIC NEUROPATHY
     Route: 048
     Dates: start: 20190119
  4. FLUCONAZOLE. [Concomitant]
     Active Substance: FLUCONAZOLE
  5. LATANOPROST. [Concomitant]
     Active Substance: LATANOPROST
  6. POT CHLORIDE [Concomitant]
     Active Substance: POTASSIUM CHLORIDE
  7. CARB/LEVO ER [Concomitant]
  8. BACLOFEN. [Concomitant]
     Active Substance: BACLOFEN
  9. DULREA [Concomitant]
  10. FLUDROCORT [Concomitant]
  11. MIDODRINE [Concomitant]
     Active Substance: MIDODRINE
  12. PREDNISONE. [Concomitant]
     Active Substance: PREDNISONE
  13. FAMOTIDINE. [Concomitant]
     Active Substance: FAMOTIDINE
  14. MONTELUKAST [Suspect]
     Active Substance: MONTELUKAST SODIUM

REACTIONS (2)
  - Cystic fibrosis [None]
  - Pneumonia [None]

NARRATIVE: CASE EVENT DATE: 20191125
